FAERS Safety Report 6831939-5 (Version None)
Quarter: 2010Q3

REPORT INFORMATION
  Report Type: 
  Country: None (occurrence: None)
  Receive Date: 20100712
  Receipt Date: 20100702
  Transmission Date: 20110219
  Serious: Yes (Death)
  Sender: FDA-Public Use
  Company Number: US-PFIZER INC-2010083533

PATIENT
  Sex: Female

DRUGS (5)
  1. NORVASC [Suspect]
  2. LIPITOR [Suspect]
  3. GLUCOTROL [Suspect]
  4. ZOLOFT [Suspect]
  5. DETROL LA [Suspect]

REACTIONS (1)
  - DEATH [None]
